FAERS Safety Report 18380132 (Version 7)
Quarter: 2024Q4

REPORT INFORMATION
  Report Type: Spontaneous
  Country: CA (occurrence: CA)
  Receive Date: 20201013
  Receipt Date: 20241024
  Transmission Date: 20250115
  Serious: Yes (Death, Disabling, Other)
  Sender: BAUSCH AND LOMB
  Company Number: CA-BAUSCH-BL-2020-028999

PATIENT
  Age: 59 Year
  Sex: Female
  Weight: 68 kg

DRUGS (25)
  1. HYDROCORTISONE [Suspect]
     Active Substance: HYDROCORTISONE
     Indication: Product used for unknown indication
     Route: 065
  2. ARESTIN [Suspect]
     Active Substance: MINOCYCLINE HYDROCHLORIDE
     Indication: Product used for unknown indication
     Route: 065
  3. ARESTIN [Suspect]
     Active Substance: MINOCYCLINE HYDROCHLORIDE
  4. MINOCYCLINE [Suspect]
     Active Substance: MINOCYCLINE HYDROCHLORIDE
     Indication: Product used for unknown indication
     Route: 065
  5. MINOCYCLINE [Suspect]
     Active Substance: MINOCYCLINE HYDROCHLORIDE
     Dosage: MINOCYCLINE HYDROCHLORIDE
     Route: 065
  6. DICLOFENAC SODIUM [Suspect]
     Active Substance: DICLOFENAC SODIUM
     Indication: Product used for unknown indication
     Route: 065
  7. DICLOFENAC SODIUM [Suspect]
     Active Substance: DICLOFENAC SODIUM
     Route: 065
  8. DICLOFENAC DIETHYLAMINE [Suspect]
     Active Substance: DICLOFENAC DIETHYLAMINE
     Indication: Product used for unknown indication
     Route: 065
  9. DICLOFENAC POTASSIUM [Suspect]
     Active Substance: DICLOFENAC POTASSIUM
     Indication: Product used for unknown indication
     Route: 065
  10. DICLOFENAC POTASSIUM [Suspect]
     Active Substance: DICLOFENAC POTASSIUM
     Route: 065
  11. DICLOFENAC POTASSIUM [Suspect]
     Active Substance: DICLOFENAC POTASSIUM
     Route: 065
  12. DICLOFENAC POTASSIUM [Suspect]
     Active Substance: DICLOFENAC POTASSIUM
     Route: 065
  13. HYDROCORTISONE ACETATE [Suspect]
     Active Substance: HYDROCORTISONE ACETATE
     Indication: Rheumatoid arthritis
     Route: 061
  14. HYDROCORTISONE ACETATE [Suspect]
     Active Substance: HYDROCORTISONE ACETATE
     Route: 048
  15. RAMIPRIL [Suspect]
     Active Substance: RAMIPRIL
     Indication: Product used for unknown indication
     Route: 065
  16. DESOXIMETASONE [Suspect]
     Active Substance: DESOXIMETASONE
     Indication: Rheumatoid arthritis
     Route: 048
  17. DESOXIMETASONE [Suspect]
     Active Substance: DESOXIMETASONE
     Route: 061
  18. DESOXIMETASONE [Suspect]
     Active Substance: DESOXIMETASONE
     Route: 003
  19. DESOXIMETASONE [Suspect]
     Active Substance: DESOXIMETASONE
     Route: 067
  20. DESOXIMETASONE [Suspect]
     Active Substance: DESOXIMETASONE
     Route: 061
  21. DESOXIMETASONE [Suspect]
     Active Substance: DESOXIMETASONE
     Route: 003
  22. DESOXIMETASONE [Suspect]
     Active Substance: DESOXIMETASONE
     Route: 067
  23. DESOXIMETASONE [Suspect]
     Active Substance: DESOXIMETASONE
     Route: 048
  24. CORTISONE ACETATE [Suspect]
     Active Substance: CORTISONE ACETATE
     Indication: Rheumatoid arthritis
     Route: 048
  25. CORTISONE ACETATE [Suspect]
     Active Substance: CORTISONE ACETATE
     Route: 048

REACTIONS (86)
  - Abdominal discomfort [Fatal]
  - Arthropathy [Fatal]
  - Discomfort [Fatal]
  - Fatigue [Fatal]
  - Glossodynia [Fatal]
  - Hand deformity [Fatal]
  - Pain [Fatal]
  - Pemphigus [Fatal]
  - Rheumatoid arthritis [Fatal]
  - Swelling [Fatal]
  - Systemic lupus erythematosus [Fatal]
  - Wound [Fatal]
  - Rash [Fatal]
  - Alopecia [Fatal]
  - Anti-cyclic citrullinated peptide antibody positive [Fatal]
  - Arthralgia [Fatal]
  - Blister [Fatal]
  - Blood cholesterol increased [Fatal]
  - Condition aggravated [Fatal]
  - Decreased appetite [Fatal]
  - Diarrhoea [Fatal]
  - Fibromyalgia [Fatal]
  - General physical health deterioration [Fatal]
  - Headache [Fatal]
  - Helicobacter infection [Fatal]
  - Hip arthroplasty [Fatal]
  - Hypercholesterolaemia [Fatal]
  - Hypersensitivity [Fatal]
  - Hypertension [Fatal]
  - Hypoaesthesia [Fatal]
  - Infusion related reaction [Fatal]
  - Injury [Fatal]
  - Joint swelling [Fatal]
  - Knee arthroplasty [Fatal]
  - Live birth [Fatal]
  - Malaise [Fatal]
  - Mobility decreased [Fatal]
  - Musculoskeletal stiffness [Fatal]
  - Pericarditis [Fatal]
  - Psoriatic arthropathy [Fatal]
  - Rash [Fatal]
  - Rheumatic fever [Fatal]
  - Type 2 diabetes mellitus [Fatal]
  - Arthritis [Fatal]
  - Rheumatoid factor positive [Fatal]
  - Synovitis [Fatal]
  - Death neonatal [Fatal]
  - Adverse drug reaction [Fatal]
  - Adverse event [Fatal]
  - Drug intolerance [Fatal]
  - Bone erosion [Fatal]
  - C-reactive protein increased [Fatal]
  - Crohn^s disease [Fatal]
  - Dizziness [Fatal]
  - Drug hypersensitivity [Fatal]
  - Ear infection [Fatal]
  - Exostosis [Fatal]
  - Foot deformity [Fatal]
  - Infection [Fatal]
  - Joint dislocation [Fatal]
  - Joint stiffness [Fatal]
  - Laryngitis [Fatal]
  - Nausea [Fatal]
  - Oedema peripheral [Fatal]
  - Osteoarthritis [Fatal]
  - Osteoporosis [Fatal]
  - Pain in extremity [Fatal]
  - Pneumonia [Fatal]
  - Red blood cell sedimentation rate increased [Fatal]
  - Retinitis [Fatal]
  - Visual impairment [Fatal]
  - Duodenal ulcer perforation [Fatal]
  - Hepatic cirrhosis [Fatal]
  - Hepatic enzyme increased [Fatal]
  - Liver injury [Fatal]
  - Drug ineffective for unapproved indication [Fatal]
  - Treatment failure [Fatal]
  - Therapeutic product effect decreased [Fatal]
  - Drug ineffective [Fatal]
  - Intentional product use issue [Fatal]
  - Product use in unapproved indication [Fatal]
  - Off label use [Fatal]
  - Product use issue [Fatal]
  - Exposure during pregnancy [Fatal]
  - Contraindicated product administered [Fatal]
  - Incorrect route of product administration [Fatal]
